FAERS Safety Report 8692516 (Version 4)
Quarter: 2013Q2

REPORT INFORMATION
  Report Type: Report from Study
  Country: JP (occurrence: JP)
  Receive Date: 20120730
  Receipt Date: 20130520
  Transmission Date: 20140414
  Serious: Yes (Other)
  Sender: FDA-Public Use
  Company Number: JP-JNJFOC-20120711570

PATIENT
  Age: 63 Year
  Sex: Male
  Weight: 87 kg

DRUGS (7)
  1. STELARA [Suspect]
     Indication: PSORIASIS
     Route: 058
     Dates: start: 20120515
  2. STELARA [Suspect]
     Indication: PSORIASIS
     Route: 058
     Dates: start: 20120221
  3. STELARA [Suspect]
     Indication: PSORIASIS
     Route: 058
     Dates: start: 20111129
  4. STELARA [Suspect]
     Indication: PSORIASIS
     Route: 058
     Dates: start: 20111101
  5. DERMOVATE [Concomitant]
     Indication: PSORIASIS
     Route: 061
  6. OXAROL [Concomitant]
     Indication: PSORIASIS
     Route: 061
  7. ANTEBATE [Concomitant]
     Indication: PSORIASIS
     Route: 061

REACTIONS (1)
  - Lacunar infarction [Recovered/Resolved]
